FAERS Safety Report 25766756 (Version 1)
Quarter: 2025Q3

REPORT INFORMATION
  Report Type: Spontaneous
  Country: US (occurrence: US)
  Receive Date: 20250905
  Receipt Date: 20250905
  Transmission Date: 20251021
  Serious: No
  Sender: ABBVIE
  Company Number: US-ABBVIE-6441251

PATIENT
  Sex: Male

DRUGS (1)
  1. SKYRIZI [Suspect]
     Active Substance: RISANKIZUMAB-RZAA
     Indication: Product used for unknown indication
     Route: 058

REACTIONS (5)
  - Feeding disorder [Unknown]
  - Oral pain [Unknown]
  - Mouth injury [Unknown]
  - Skin erosion [Unknown]
  - Oral discomfort [Unknown]

NARRATIVE: CASE EVENT DATE: 20250830
